FAERS Safety Report 6405531-0 (Version None)
Quarter: 2009Q4

REPORT INFORMATION
  Report Type: 
  Country: None (occurrence: None)
  Receive Date: 20091019
  Receipt Date: 20090923
  Transmission Date: 20100525
  Serious: Yes (Other)
  Sender: FDA-Public Use
  Company Number: CA-PFIZER INC-2009279889

PATIENT
  Age: 52 Year

DRUGS (17)
  1. ZIDOVUDINE [Suspect]
     Indication: HIV INFECTION
     Dosage: UNK
  2. LAMIVUDINE [Suspect]
     Indication: HIV INFECTION
     Dosage: UNK
  3. DIDANOSINE [Suspect]
     Indication: HIV INFECTION
  4. STAVUDINE [Suspect]
     Dosage: UNK
  5. ABACAVIR [Suspect]
     Indication: HIV INFECTION
  6. NEVIRAPINE [Suspect]
  7. DELAVIRDINE [Suspect]
     Indication: HIV INFECTION
     Dosage: UNK
  8. EFAVIRENZ [Suspect]
     Indication: HIV INFECTION
     Dosage: UNK
  9. INDINAVIR [Suspect]
     Indication: HIV INFECTION
     Dosage: UNK
  10. SAQUINAVIR [Suspect]
     Indication: HIV INFECTION
     Dosage: UNK
  11. NELFINAVIR MESILATE [Suspect]
  12. LOPINAVIR [Suspect]
     Indication: HIV INFECTION
     Dosage: UNK
  13. RITONAVIR [Suspect]
     Indication: HIV INFECTION
     Dosage: UNK
  14. TENOFOVIR [Suspect]
     Indication: HIV INFECTION
     Dosage: UNK
  15. DARUNAVIR [Suspect]
     Indication: HIV INFECTION
     Dosage: UNK
  16. ETRAVIRINE [Suspect]
     Indication: HIV INFECTION
     Dosage: UNK
  17. RALTEGRAVIR [Suspect]
     Indication: HIV INFECTION
     Dosage: UNK

REACTIONS (5)
  - DIPLOPIA [None]
  - EYELID PTOSIS [None]
  - LIPODYSTROPHY ACQUIRED [None]
  - MITOCHONDRIAL TOXICITY [None]
  - PROGRESSIVE EXTERNAL OPHTHALMOPLEGIA [None]
